FAERS Safety Report 12657783 (Version 1)
Quarter: 2016Q3

REPORT INFORMATION
  Report Type: Spontaneous
  Country: US (occurrence: US)
  Receive Date: 20160817
  Receipt Date: 20160817
  Transmission Date: 20161109
  Serious: No
  Sender: FDA-Public Use
  Company Number: US-ASTRAZENECA-2016SE87843

PATIENT
  Sex: Female

DRUGS (1)
  1. NEXIUM 24HR [Suspect]
     Active Substance: ESOMEPRAZOLE MAGNESIUM
     Route: 048

REACTIONS (8)
  - Vomiting [Unknown]
  - Abdominal distension [Unknown]
  - Drug ineffective [Unknown]
  - Constipation [Unknown]
  - Abdominal pain upper [Unknown]
  - Headache [Unknown]
  - Malaise [Unknown]
  - Product quality issue [Unknown]
